FAERS Safety Report 10985737 (Version 2)
Quarter: 2019Q3

REPORT INFORMATION
  Report Type: Spontaneous
  Country: US (occurrence: US)
  Receive Date: 20150404
  Receipt Date: 20190708
  Transmission Date: 20191004
  Serious: No
  Sender: FDA-Public Use
  Company Number: US-SA-2014SA058192

PATIENT
  Sex: Female

DRUGS (1)
  1. ALLEGRA-D [Suspect]
     Active Substance: FEXOFENADINE\PSEUDOEPHEDRINE
     Indication: MULTIPLE ALLERGIES
     Dosage: 2 DF,QD
     Route: 048

REACTIONS (4)
  - Condition aggravated [Unknown]
  - Extra dose administered [Unknown]
  - Dry eye [Unknown]
  - Feeling abnormal [Unknown]
